FAERS Safety Report 4795562-9 (Version None)
Quarter: 2005Q3

REPORT INFORMATION
  Report Type: 
  Country: None (occurrence: None)
  Receive Date: 20050916
  Receipt Date: 20050601
  Transmission Date: 20060218
  Serious: Yes (Other)
  Sender: FDA-Public Use
  Company Number: US-JNJFOC-20050504763

PATIENT
  Age: 4 Year
  Sex: Male
  Weight: 12.2471 kg

DRUGS (4)
  1. TOPAMAX [Suspect]
     Indication: CONVULSION
     Dosage: 75MG, 2 IN 1 DAY; 50 MG, 2 IN 1 DAY,
     Dates: end: 20050501
  2. TOPAMAX [Suspect]
     Indication: CONVULSION
     Dosage: 75MG, 2 IN 1 DAY; 50 MG, 2 IN 1 DAY,
     Dates: start: 20050501
  3. TRILEPTAL (UNSPECIFIED) OXCARBAZEPINE [Concomitant]
  4. PHENOBARBITAL (UNSPECIFIED) PHENOBARBITAL [Concomitant]

REACTIONS (7)
  - GENERALISED ERYTHEMA [None]
  - HYPERTHERMIA [None]
  - LEUKOPENIA [None]
  - NEUTROPENIA [None]
  - PETIT MAL EPILEPSY [None]
  - SIMPLE PARTIAL SEIZURES [None]
  - THROMBOCYTOPENIA [None]
